FAERS Safety Report 14054672 (Version 1)
Quarter: 2017Q4

REPORT INFORMATION
  Report Type: Spontaneous
  Country: US (occurrence: None)
  Receive Date: 20171006
  Receipt Date: 20171006
  Transmission Date: 20180321
  Serious: Yes (Hospitalization)
  Sender: FDA-Public Use
  Company Number: None

PATIENT
  Age: 66 Year
  Sex: Male
  Weight: 96.2 kg

DRUGS (2)
  1. LEUPROLIDE ACETATE. [Suspect]
     Active Substance: LEUPROLIDE ACETATE
     Dates: end: 20151204
  2. CASODEX [Suspect]
     Active Substance: BICALUTAMIDE
     Dates: end: 20150214

REACTIONS (6)
  - Headache [None]
  - Haemoglobin decreased [None]
  - Dyspnoea [None]
  - Rectal haemorrhage [None]
  - Dizziness [None]
  - Fatigue [None]

NARRATIVE: CASE EVENT DATE: 20170421
